FAERS Safety Report 4767728-5 (Version None)
Quarter: 2005Q3

REPORT INFORMATION
  Report Type: 
  Country: None (occurrence: None)
  Receive Date: 20050912
  Receipt Date: 20050830
  Transmission Date: 20060218
  Serious: Yes (Other)
  Sender: FDA-Public Use
  Company Number: 020-20785-05090048

PATIENT
  Age: 58 Year
  Sex: Female

DRUGS (1)
  1. THALIDOMIDE (THALIDOMIDE) (CAPSULES) [Suspect]
     Indication: MULTIPLE MYELOMA
     Dosage: 20 MG INCREASED TO 300 MG, DAILY, ORAL
     Route: 048
     Dates: start: 20000601

REACTIONS (10)
  - ASTHENIA [None]
  - BLOOD IMMUNOGLOBULIN A INCREASED [None]
  - BRADYCARDIA [None]
  - HEPATIC LESION [None]
  - HYPOTHYROIDISM [None]
  - LIGHT CHAIN ANALYSIS ABNORMAL [None]
  - NEOPLASM RECURRENCE [None]
  - PLASMACYTOMA [None]
  - SYNCOPE [None]
  - THERAPY NON-RESPONDER [None]
